FAERS Safety Report 5527182-2 (Version None)
Quarter: 2007Q4

REPORT INFORMATION
  Report Type: 
  Country: None (occurrence: None)
  Receive Date: 20071121
  Receipt Date: 20071106
  Transmission Date: 20080405
  Serious: Yes (Hospitalization)
  Sender: FDA-Public Use
  Company Number: A-US2006-12898

PATIENT
  Age: 75 Year
  Sex: Female

DRUGS (14)
  1. TRACLEER [Suspect]
     Indication: PULMONARY HYPERTENSION
     Dosage: 62.5 MG, BID, ORAL; 125 MG, BID, ORAL; 62.5, BID, ORAL; 62.5 MG, BID, ORAL
     Route: 048
     Dates: start: 20060101, end: 20061001
  2. TRACLEER [Suspect]
     Indication: PULMONARY HYPERTENSION
     Dosage: 62.5 MG, BID, ORAL; 125 MG, BID, ORAL; 62.5, BID, ORAL; 62.5 MG, BID, ORAL
     Route: 048
     Dates: start: 20061001, end: 20070301
  3. TRACLEER [Suspect]
     Indication: PULMONARY HYPERTENSION
     Dosage: 62.5 MG, BID, ORAL; 125 MG, BID, ORAL; 62.5, BID, ORAL; 62.5 MG, BID, ORAL
     Route: 048
     Dates: start: 20070301, end: 20070810
  4. TRACLEER [Suspect]
     Indication: PULMONARY HYPERTENSION
     Dosage: 62.5 MG, BID, ORAL; 125 MG, BID, ORAL; 62.5, BID, ORAL; 62.5 MG, BID, ORAL
     Route: 048
     Dates: start: 20070828
  5. ACETAMINOPHEN [Concomitant]
  6. FUROSEMIDE                       (FUROSEMIDE SODIUM) [Concomitant]
  7. METOLAZONE [Concomitant]
  8. POTASSIUM                 (POTASSIUM BICARBONATE, POTASSIUM CHLORIDE) [Concomitant]
  9. TBCR [Concomitant]
  10. PRILOSEC [Concomitant]
  11. VYTORIN [Concomitant]
  12. WARFARIN SODIUM [Concomitant]
  13. OXYGEN          (OXYGEN) [Concomitant]
  14. MULTIVITAMIN          (VITAMINS NOS, MINERALS NOS) [Concomitant]

REACTIONS (7)
  - ABDOMINAL PAIN UPPER [None]
  - ALANINE AMINOTRANSFERASE INCREASED [None]
  - ASPARTATE AMINOTRANSFERASE INCREASED [None]
  - BLOOD ALKALINE PHOSPHATASE INCREASED [None]
  - BLOOD BILIRUBIN INCREASED [None]
  - PRESYNCOPE [None]
  - RIGHT VENTRICULAR FAILURE [None]
